FAERS Safety Report 4399709-8 (Version None)
Quarter: 2004Q3

REPORT INFORMATION
  Report Type: 
  Country: None (occurrence: None)
  Receive Date: 20040715
  Receipt Date: 20040713
  Transmission Date: 20050211
  Serious: Yes (Other)
  Sender: FDA-Public Use
  Company Number: C04-C-104

PATIENT
  Age: 72 Year
  Sex: Female
  Weight: 72.5755 kg

DRUGS (1)
  1. INDOMETHACIN [Suspect]
     Indication: ARTHRITIS
     Dosage: 1 PER DAY
     Dates: start: 20040620, end: 20040711

REACTIONS (1)
  - DRUG INEFFECTIVE [None]
